FAERS Safety Report 13678373 (Version 1)
Quarter: 2017Q2

REPORT INFORMATION
  Report Type: Spontaneous
  Country: DE (occurrence: DE)
  Receive Date: 20170622
  Receipt Date: 20170622
  Transmission Date: 20170830
  Serious: Yes (Other)
  Sender: FDA-Public Use
  Company Number: DE-BIOGEN-2017BI00420283

PATIENT
  Sex: Male
  Weight: 3.25 kg

DRUGS (4)
  1. PARACETAMOL [Concomitant]
     Active Substance: ACETAMINOPHEN
     Indication: MATERNAL EXPOSURE DURING PREGNANCY
     Route: 064
     Dates: start: 20160205, end: 20161016
  2. AVONEX [Suspect]
     Active Substance: INTERFERON BETA-1A
     Indication: MATERNAL EXPOSURE TIMING UNSPECIFIED
     Route: 064
     Dates: start: 20160205, end: 20161016
  3. PARACETAMOL [Concomitant]
     Active Substance: ACETAMINOPHEN
     Route: 063
     Dates: start: 20161017
  4. AVONEX [Suspect]
     Active Substance: INTERFERON BETA-1A
     Route: 063
     Dates: start: 20161017

REACTIONS (2)
  - Foetal exposure timing unspecified [Recovered/Resolved]
  - Cytogenetic abnormality [Unknown]
